FAERS Safety Report 8856224 (Version 1)
Quarter: 2012Q4

REPORT INFORMATION
  Report Type: Spontaneous
  Country: GB (occurrence: None)
  Receive Date: 20121019
  Receipt Date: 20121019
  Transmission Date: 20130627
  Serious: Yes (Other)
  Sender: FDA-Public Use
  Company Number: GB-BANPHARM-20120222

PATIENT
  Age: 42 Year
  Sex: Male

DRUGS (11)
  1. IBUPROFEN [Suspect]
     Dosage: no of separate dosages = no of units per intervel
     Dates: start: 20121106
  2. AMOXYCILLIN [Concomitant]
  3. ASPIRN [Concomitant]
  4. CHLORPROMAZINE [Concomitant]
  5. CODEINE PHOSPHATE (PARACETAMOL) [Concomitant]
  6. DIAZEPAM [Concomitant]
  7. LANSOPRAZOLE [Concomitant]
  8. MIRTAZAPINE [Concomitant]
  9. PARACETAMOL [Concomitant]
  10. PROPANOLOL [Concomitant]
  11. ZOPICLONE [Concomitant]

REACTIONS (2)
  - Gastric ulcer [None]
  - Haematemesis [None]
